FAERS Safety Report 20430818 (Version 1)
Quarter: 2022Q1

REPORT INFORMATION
  Report Type: Spontaneous
  Country: JP (occurrence: JP)
  Receive Date: 20220204
  Receipt Date: 20220204
  Transmission Date: 20220423
  Serious: No
  Sender: FDA-Public Use
  Company Number: JP-Covis Pharma GmbH-2021COV23741

PATIENT
  Sex: Female

DRUGS (1)
  1. CICLESONIDE [Suspect]
     Active Substance: CICLESONIDE
     Indication: Post-acute COVID-19 syndrome

REACTIONS (2)
  - Off label use [Unknown]
  - Wrong technique in product usage process [Unknown]
